FAERS Safety Report 14491757 (Version 2)
Quarter: 2018Q1

REPORT INFORMATION
  Report Type: Other
  Country: IT (occurrence: IT)
  Receive Date: 20180206
  Receipt Date: 20180320
  Transmission Date: 20180509
  Serious: Yes (Other)
  Sender: FDA-Public Use
  Company Number: IT-ASTELLAS-2018US005245

PATIENT
  Age: 74 Year
  Sex: Male
  Weight: 179 kg

DRUGS (2)
  1. XTANDI [Suspect]
     Active Substance: ENZALUTAMIDE
     Indication: PROSTATE CANCER
     Route: 048
     Dates: start: 20170901, end: 20180117
  2. DUROGESIC [Interacting]
     Active Substance: FENTANYL
     Indication: PAIN
     Route: 062
     Dates: start: 20180119, end: 20180122

REACTIONS (2)
  - Clonus [Unknown]
  - Drug interaction [Unknown]

NARRATIVE: CASE EVENT DATE: 20180119
